FAERS Safety Report 6162717-0 (Version None)
Quarter: 2009Q2

REPORT INFORMATION
  Report Type: 
  Country: None (occurrence: None)
  Receive Date: 20090421
  Receipt Date: 20080310
  Transmission Date: 20091009
  Serious: No
  Sender: FDA-Public Use
  Company Number: US-ASTRAZENECA-2008UW04863

PATIENT
  Age: 54 Year
  Sex: Female
  Weight: 65.8 kg

DRUGS (3)
  1. TOPROL-XL [Suspect]
     Indication: HYPERTENSION
     Route: 048
  2. PROCARDIA [Concomitant]
     Indication: HYPERTENSION
  3. HYDROCHLOROTHIAZIDE [Concomitant]

REACTIONS (4)
  - ASTIGMATISM [None]
  - CORNEAL DISORDER [None]
  - DRY EYE [None]
  - VISION BLURRED [None]
